FAERS Safety Report 9780927 (Version 2)
Quarter: 2013Q4

REPORT INFORMATION
  Report Type: Report from Study
  Country: US (occurrence: US)
  Receive Date: 20131224
  Receipt Date: 20131224
  Transmission Date: 20140711
  Serious: Yes (Hospitalization, Other)
  Sender: FDA-Public Use
  Company Number: PHHO2013US007319

PATIENT
  Age: 52 Year
  Sex: Female
  Weight: 155.9 kg

DRUGS (6)
  1. SOM230 [Suspect]
     Indication: ACROMEGALY
     Dosage: 60 MG, UNK
     Route: 030
     Dates: start: 20120531, end: 20130502
  2. METFORMIN [Suspect]
     Indication: BLOOD GLUCOSE INCREASED
     Dosage: 1000 MG, BID
     Dates: start: 20121024, end: 20130516
  3. HUMALOG [Suspect]
     Indication: HYPERGLYCAEMIA
     Dosage: 30-40 UNITS TID
     Dates: start: 20121211
  4. LANTUS [Suspect]
     Indication: DIABETES MELLITUS
     Dosage: 75 U, QHS
     Dates: start: 20130122
  5. TOPIRAMATE [Concomitant]
     Indication: PROPHYLAXIS
     Dosage: 200 MG, BID
     Dates: start: 20130326, end: 20130516
  6. LACOSAMIDE [Concomitant]
     Indication: PROPHYLAXIS
     Dosage: 150 MG, BID
     Dates: start: 20130517

REACTIONS (5)
  - Hypoglycaemia [Recovered/Resolved]
  - Metabolic encephalopathy [Unknown]
  - Acute respiratory failure [Unknown]
  - Renal failure acute [Unknown]
  - Staphylococcal infection [Unknown]
